FAERS Safety Report 12906455 (Version 2)
Quarter: 2016Q4

REPORT INFORMATION
  Report Type: Spontaneous
  Country: US (occurrence: US)
  Receive Date: 20161103
  Receipt Date: 20161111
  Transmission Date: 20170207
  Serious: Yes (Death, Hospitalization)
  Sender: FDA-Public Use
  Company Number: US-UNITED THERAPEUTICS-UNT-2016-016685

PATIENT
  Sex: Female

DRUGS (2)
  1. REMODULIN [Suspect]
     Active Substance: TREPROSTINIL
     Dosage: 10 MG, AS DIRECTED (UD)
     Route: 058
     Dates: end: 20161104
  2. REMODULIN [Suspect]
     Active Substance: TREPROSTINIL
     Indication: PULMONARY ARTERIAL HYPERTENSION
     Dosage: 0.0665 UNK, CONTINUING
     Route: 058
     Dates: start: 20160226

REACTIONS (2)
  - Shock [Unknown]
  - Death [Fatal]

NARRATIVE: CASE EVENT DATE: 201610
